FAERS Safety Report 8969532 (Version 1)
Quarter: 2012Q4

REPORT INFORMATION
  Report Type: 
  Country: US (occurrence: US)
  Receive Date: 20121218
  Receipt Date: 20121218
  Transmission Date: 20130627
  Serious: No
  Sender: FDA-Public Use
  Company Number: US-BRISTOL-MYERS SQUIBB COMPANY-16590523

PATIENT
  Age: 18 Year
  Sex: Male
  Weight: 126.98 kg

DRUGS (1)
  1. ABILIFY [Suspect]
     Dosage: in morning. appr 3 months ago.Initial 10mg Daily,increased to 30mg. from last week night
     Dates: start: 2012

REACTIONS (5)
  - Weight increased [Unknown]
  - Glucose tolerance impaired [Unknown]
  - Increased appetite [Unknown]
  - Drug dose omission [Unknown]
  - Blood cholesterol increased [Unknown]
